FAERS Safety Report 4293609-X (Version None)
Quarter: 2004Q1

REPORT INFORMATION
  Report Type: 
  Country: None (occurrence: None)
  Receive Date: 20040210
  Receipt Date: 20040202
  Transmission Date: 20041129
  Serious: Yes (Death, Hospitalization, Other)
  Sender: FDA-Public Use
  Company Number: FR-JNJFOC-20040103927

PATIENT
  Age: 46 Year
  Sex: Female

DRUGS (6)
  1. DOXORUBICIN HYDROCHLORIDE [Suspect]
     Indication: BREAST CANCER METASTATIC
     Dosage: 50 MG/M2, INTRAVENOUS
     Route: 042
     Dates: start: 20031120, end: 20031212
  2. PAROXETINE HCL [Concomitant]
  3. MORPHINE [Concomitant]
  4. PYRIDOXINE HCL TAB [Concomitant]
  5. BETAMETHASONE [Concomitant]
  6. AREDIA [Concomitant]

REACTIONS (10)
  - ALANINE AMINOTRANSFERASE INCREASED [None]
  - ASPARTATE AMINOTRANSFERASE INCREASED [None]
  - BLOOD ALKALINE PHOSPHATASE INCREASED [None]
  - DISEASE PROGRESSION [None]
  - FEBRILE BONE MARROW APLASIA [None]
  - GAMMA-GLUTAMYLTRANSFERASE INCREASED [None]
  - GENERAL PHYSICAL HEALTH DETERIORATION [None]
  - HAEMOGLOBIN DECREASED [None]
  - MORAXELLA INFECTION [None]
  - SEPSIS [None]
